FAERS Safety Report 7878961-8 (Version None)
Quarter: 2011Q4

REPORT INFORMATION
  Report Type: 
  Country: None (occurrence: None)
  Receive Date: 20111101
  Receipt Date: 20111019
  Transmission Date: 20120403
  Serious: Yes (Hospitalization)
  Sender: FDA-Public Use
  Company Number: PHEH2011US07413

PATIENT

DRUGS (21)
  1. LORAZEPAM [Concomitant]
  2. FENTANYL-100 [Concomitant]
  3. ALLOPURINOL [Concomitant]
  4. FOLIC ACID [Concomitant]
  5. SULFAMETHOXAZOLE AND TRIMETHOPRIM [Concomitant]
  6. ABILIFY [Concomitant]
  7. PROGRAF [Concomitant]
  8. COUMADIN [Concomitant]
  9. AMBIEN [Concomitant]
  10. GLEEVEC [Suspect]
     Dosage: 200 MG, BID
     Route: 048
  11. VITAMIN B 1-6-12 [Concomitant]
  12. OXYCODONE HCL [Concomitant]
  13. INSULIN [Concomitant]
  14. FLEXERIL [Concomitant]
  15. PRILOSEC [Concomitant]
  16. ESTAZOLAM [Concomitant]
  17. OXYCONTIN [Concomitant]
  18. ATIVAN [Concomitant]
  19. PRISTIQ [Concomitant]
  20. LASIX [Concomitant]
  21. CYCLOBENZAPRINE HYDROCHLORIDE [Concomitant]

REACTIONS (3)
  - ASTHENIA [None]
  - PALLOR [None]
  - BLOOD INSULIN INCREASED [None]
